FAERS Safety Report 6734928-4 (Version None)
Quarter: 2010Q2

REPORT INFORMATION
  Report Type: 
  Country: None (occurrence: None)
  Receive Date: 20100521
  Receipt Date: 20100510
  Transmission Date: 20101027
  Serious: Yes (Hospitalization)
  Sender: FDA-Public Use
  Company Number: US-RB-009652-10

PATIENT
  Age: 74 Year
  Sex: Male

DRUGS (3)
  1. DELSYM CHILDREN'S ORANGE 5 OZ [Suspect]
     Dosage: TOOK TWO TEASPOONS PER DOSE ONCE A DAY FOR ONE DAY ON SEVERAL OCCASIONS
     Route: 048
     Dates: start: 20100501
  2. DELSYM CHILDREN'S ORANGE 5 OZ [Suspect]
     Dosage: TOOK TWO TEASPOONS PER DOSE ONCE A DAY FOR ONE DAY ON SEVERAL OCCASIONS
     Route: 048
     Dates: start: 20091101
  3. DELSYM CHILDREN'S ORANGE 5 OZ [Suspect]
     Dosage: TOOK TWO TEASPOONS PER DOSE ONCE A DAY FOR ONE DAY ON SEVERAL OCCASIONS
     Route: 048
     Dates: start: 20100401

REACTIONS (4)
  - ABDOMINAL DISCOMFORT [None]
  - CHEST PAIN [None]
  - DIZZINESS [None]
  - EXPIRED DRUG ADMINISTERED [None]
